FAERS Safety Report 7415385-1 (Version None)
Quarter: 2011Q2

REPORT INFORMATION
  Report Type: 
  Country: None (occurrence: None)
  Receive Date: 20110414
  Receipt Date: 20110401
  Transmission Date: 20111010
  Serious: Yes (Hospitalization)
  Sender: FDA-Public Use
  Company Number: B0711125A

PATIENT
  Age: 75 Year
  Sex: Male

DRUGS (12)
  1. SEFTAC [Concomitant]
     Dosage: 450MG PER DAY
     Route: 048
  2. UNKNOWN [Concomitant]
     Dosage: 150MG PER DAY
     Route: 048
  3. ALKERAN [Suspect]
     Indication: MULTIPLE MYELOMA
     Dosage: 12MG PER DAY
     Route: 048
     Dates: start: 20110315, end: 20110316
  4. ALKERAN [Suspect]
     Dosage: 10MG PER DAY
     Route: 048
     Dates: start: 20110317, end: 20110318
  5. AMLODIPINE BESILATE [Concomitant]
     Dosage: 20MG PER DAY
     Route: 048
  6. ALLOPURINOL [Concomitant]
     Dosage: 50MG PER DAY
     Route: 048
  7. ANGINAL [Concomitant]
     Dosage: 25MG PER DAY
     Route: 048
  8. PREDONINE [Concomitant]
     Dosage: 40MG PER DAY
     Route: 048
     Dates: start: 20110315, end: 20110318
  9. PREDONINE [Concomitant]
     Dosage: 10MG PER DAY
     Route: 048
     Dates: start: 20110319, end: 20110320
  10. DIOVAN [Concomitant]
     Dosage: 80MG PER DAY
     Route: 048
  11. PLATIBIT [Concomitant]
     Dosage: .25MCG PER DAY
     Route: 048
  12. PREDONINE [Concomitant]
     Dosage: 5MG PER DAY
     Route: 048
     Dates: start: 20110321, end: 20110325

REACTIONS (2)
  - RENAL IMPAIRMENT [None]
  - BONE MARROW FAILURE [None]
